FAERS Safety Report 13850492 (Version 2)
Quarter: 2017Q3

REPORT INFORMATION
  Report Type: Spontaneous
  Country: UY (occurrence: UY)
  Receive Date: 20170810
  Receipt Date: 20170916
  Transmission Date: 20171127
  Serious: Yes (Other)
  Sender: FDA-Public Use
  Company Number: UY-AMGEN-URYSP2017120439

PATIENT
  Age: 66 Year
  Sex: Female

DRUGS (2)
  1. VITAMIN D3 [Concomitant]
     Active Substance: CHOLECALCIFEROL
     Dosage: 2000 UNK, QD
  2. PROLIA [Suspect]
     Active Substance: DENOSUMAB
     Indication: OSTEOPOROSIS
     Dosage: Q6MO
     Route: 065
     Dates: start: 2014

REACTIONS (5)
  - Gastric ulcer [Unknown]
  - Bone loss [Unknown]
  - Oesophagitis [Unknown]
  - Nephrocalcinosis [Unknown]
  - Hiatus hernia [Unknown]
